FAERS Safety Report 14155075 (Version 1)
Quarter: 2017Q4

REPORT INFORMATION
  Report Type: Report from Study
  Country: None (occurrence: CH)
  Receive Date: 20171103
  Receipt Date: 20171103
  Transmission Date: 20180321
  Serious: Yes (Hospitalization)
  Sender: FDA-Public Use
  Company Number: CH-ABBVIE-17K-151-2147617-00

PATIENT
  Sex: Male

DRUGS (2)
  1. DUODOPA [Suspect]
     Active Substance: CARBIDOPA\LEVODOPA
     Indication: PARKINSON^S DISEASE
     Dosage: MORNING DOSE 6.5ML??CONTINUOUS RATE DAY 2.3ML/H??EXTRA DOSE 1.0ML
     Route: 050
     Dates: start: 20171025, end: 20171027
  2. DUODOPA [Suspect]
     Active Substance: CARBIDOPA\LEVODOPA
     Dosage: MORNING DOSE 6.5ML??CONTINUOUS RATE DAY 2.1ML/H??EXTRA DOSE 1.0ML
     Route: 050
     Dates: start: 20171027

REACTIONS (4)
  - Hallucination [Unknown]
  - Unintentional medical device removal [Unknown]
  - Disorientation [Unknown]
  - Confusional state [Unknown]
